FAERS Safety Report 8511152-6 (Version None)
Quarter: 2012Q2

REPORT INFORMATION
  Report Type: 
  Country: None (occurrence: None)
  Receive Date: 20120629
  Receipt Date: 20120625
  Transmission Date: 20120825
  Serious: Yes (Life-Threatening)
  Sender: FDA-Public Use
  Company Number: 2012SP035259

PATIENT
  Age: 70 Year
  Sex: Female

DRUGS (12)
  1. LANSOPRAZOLE [Concomitant]
  2. VITAMIN D [Concomitant]
  3. EYE DROP [Concomitant]
  4. SUFENTANIL CITRATE [Concomitant]
  5. ETOMIDATE [Concomitant]
  6. CITALOPRAM HYDROBROMIDE [Concomitant]
  7. FEMARA [Concomitant]
  8. NORCURON [Suspect]
     Indication: INDUCTION OF ANAESTHESIA
     Dosage: 1 DF;ONCE;IV
     Route: 042
     Dates: start: 20120302, end: 20120302
  9. LEVOTHYROXINE SODIUM [Concomitant]
  10. METEOSPASMYL [Concomitant]
  11. DIPRIVAN [Concomitant]
  12. CHONDROSULF [Concomitant]

REACTIONS (2)
  - ANAPHYLACTIC SHOCK [None]
  - ANAESTHETIC COMPLICATION [None]
